FAERS Safety Report 9321236 (Version 1)
Quarter: 2013Q2

REPORT INFORMATION
  Report Type: Report from Study
  Country: CA (occurrence: CA)
  Receive Date: 20130531
  Receipt Date: 20130531
  Transmission Date: 20140414
  Serious: Yes (Other)
  Sender: FDA-Public Use
  Company Number: CA-JNJFOC-20130520127

PATIENT
  Age: 45 Year
  Sex: Female
  Weight: 77 kg

DRUGS (6)
  1. REMICADE [Suspect]
     Indication: CROHN^S DISEASE
     Dosage: 10MG/KG
     Route: 042
     Dates: start: 20130524
  2. REMICADE [Suspect]
     Indication: CROHN^S DISEASE
     Route: 042
     Dates: start: 201206
  3. AZATHIOPRINE [Concomitant]
     Route: 065
  4. LOMOTIL [Concomitant]
     Route: 065
  5. IRON INFUSION [Concomitant]
     Route: 065
  6. CODEINE [Concomitant]
     Route: 065

REACTIONS (2)
  - Fistula [Not Recovered/Not Resolved]
  - Haemorrhage [Unknown]
